FAERS Safety Report 14410465 (Version 1)
Quarter: 2018Q1

REPORT INFORMATION
  Report Type: Report from Study
  Country: FR (occurrence: FR)
  Receive Date: 20180119
  Receipt Date: 20180119
  Transmission Date: 20180509
  Serious: Yes (Hospitalization)
  Sender: FDA-Public Use
  Company Number: FR-GUERBET-FR-20180023

PATIENT
  Age: 37 Year
  Sex: Male

DRUGS (1)
  1. OPTIJECT [Suspect]
     Active Substance: IOVERSOL
     Indication: COMPUTERISED TOMOGRAM
     Route: 042
     Dates: start: 20180111, end: 20180111

REACTIONS (7)
  - Dysphonia [Recovering/Resolving]
  - Type I hypersensitivity [Recovering/Resolving]
  - Vomiting [Recovering/Resolving]
  - Laryngeal discomfort [Recovering/Resolving]
  - Nausea [Recovering/Resolving]
  - Cyanosis [Recovering/Resolving]
  - Dyspnoea [Recovering/Resolving]

NARRATIVE: CASE EVENT DATE: 20180111
